FAERS Safety Report 17347575 (Version 1)
Quarter: 2020Q1

REPORT INFORMATION
  Report Type: Spontaneous
  Country: US (occurrence: US)
  Receive Date: 20200130
  Receipt Date: 20200130
  Transmission Date: 20200409
  Serious: No
  Sender: FDA-Public Use
  Company Number: US-VERTEX PHARMACEUTICALS-2020-001442

PATIENT
  Age: 48 Year
  Sex: Female
  Weight: 72 kg

DRUGS (2)
  1. SODIUM CHLORIDE. [Concomitant]
     Active Substance: SODIUM CHLORIDE
     Dosage: UNK
  2. TRIKAFTA [Suspect]
     Active Substance: ELEXACAFTOR\IVACAFTOR\TEZACAFTOR
     Indication: CYSTIC FIBROSIS
     Dosage: ELEXACAFTOR/TEZACAFTOR/IVACAFTOR AND IVACAFTOR, FREQUENCY UNKNOWN
     Route: 048

REACTIONS (1)
  - Respiratory tract infection [Unknown]

NARRATIVE: CASE EVENT DATE: 202001
